FAERS Safety Report 6231810-6 (Version None)
Quarter: 2009Q2

REPORT INFORMATION
  Report Type: 
  Country: None (occurrence: None)
  Receive Date: 20090612
  Receipt Date: 20090612
  Transmission Date: 20091009
  Serious: Yes (Life-Threatening, Hospitalization)
  Sender: FDA-Public Use
  Company Number: None

PATIENT
  Age: 6 Year
  Sex: Female
  Weight: 25 kg

DRUGS (1)
  1. COTRIMOXAZOL 60ML DELTA SA [Suspect]
     Indication: INFLUENZA
     Dosage: 5ML 6 HRS BUCCAL
     Route: 002
     Dates: start: 20090527, end: 20090529

REACTIONS (1)
  - STEVENS-JOHNSON SYNDROME [None]
